FAERS Safety Report 24025286 (Version 1)
Quarter: 2024Q2

REPORT INFORMATION
  Report Type: Spontaneous
  Country: US (occurrence: US)
  Receive Date: 20240628
  Receipt Date: 20240628
  Transmission Date: 20240715
  Serious: No
  Sender: FDA-Public Use
  Company Number: US-AUROBINDO-AUR-APL-2023-064895

PATIENT
  Sex: Female

DRUGS (3)
  1. AZELASTINE HYDROCHLORIDE [Suspect]
     Active Substance: AZELASTINE HYDROCHLORIDE
     Indication: Hypersensitivity
     Dosage: UNK UNK, TWO TIMES A DAY (02 SPARYS IN EACH NOSTRIL TWICE A DAY (AS NEEDED) )
     Route: 065
     Dates: start: 20231011
  2. AZELASTINE HYDROCHLORIDE [Suspect]
     Active Substance: AZELASTINE HYDROCHLORIDE
     Dosage: UNK UNK, TWO TIMES A DAY (02 SPARYS IN EACH NOSTRIL TWICE A DAY (AS NEEDED) )
     Route: 065
     Dates: start: 20231012
  3. AZELASTINE HYDROCHLORIDE [Suspect]
     Active Substance: AZELASTINE HYDROCHLORIDE
     Dosage: UNK UNK, TWO TIMES A DAY (02 SPARYS IN EACH NOSTRIL TWICE A DAY (AS NEEDED) )
     Route: 065
     Dates: start: 20231013

REACTIONS (2)
  - Product packaging quantity issue [Unknown]
  - Product dose omission issue [Unknown]

NARRATIVE: CASE EVENT DATE: 20231014
